FAERS Safety Report 13586673 (Version 2)
Quarter: 2023Q1

REPORT INFORMATION
  Report Type: Spontaneous
  Country: CA (occurrence: CA)
  Receive Date: 20170526
  Receipt Date: 20230313
  Transmission Date: 20230418
  Serious: Yes (Hospitalization, Other)
  Sender: FDA-Public Use
  Company Number: CA-BOEHRINGERINGELHEIM-2017-BI-028520

PATIENT
  Age: 73 Year
  Sex: Female
  Weight: 50 kg

DRUGS (12)
  1. DABIGATRAN ETEXILATE MESYLATE [Suspect]
     Active Substance: DABIGATRAN ETEXILATE MESYLATE
     Indication: Atrial fibrillation
     Route: 065
  2. DABIGATRAN ETEXILATE MESYLATE [Suspect]
     Active Substance: DABIGATRAN ETEXILATE MESYLATE
     Indication: Arrhythmia
     Route: 048
  3. DESOXIMETASONE [Suspect]
     Active Substance: DESOXIMETASONE
     Indication: Product used for unknown indication
     Route: 065
  4. DILTIAZEM [Suspect]
     Active Substance: DILTIAZEM
     Indication: Product used for unknown indication
     Route: 065
  5. DILTIAZEM [Suspect]
     Active Substance: DILTIAZEM
     Route: 065
  6. SANDOSTATIN [Suspect]
     Active Substance: OCTREOTIDE ACETATE
     Indication: Neuroendocrine tumour
     Route: 030
  7. SANDOSTATIN [Suspect]
     Active Substance: OCTREOTIDE ACETATE
     Route: 058
  8. SANDOSTATIN [Suspect]
     Active Substance: OCTREOTIDE ACETATE
     Route: 030
  9. SANDOSTATIN [Suspect]
     Active Substance: OCTREOTIDE ACETATE
     Route: 030
  10. SANDOSTATIN [Suspect]
     Active Substance: OCTREOTIDE ACETATE
     Route: 030
  11. SANDOSTATIN [Suspect]
     Active Substance: OCTREOTIDE ACETATE
     Route: 030
  12. SANDOSTATIN [Suspect]
     Active Substance: OCTREOTIDE ACETATE
     Route: 030

REACTIONS (35)
  - Hypersensitivity [Recovered/Resolved]
  - Malignant neoplasm progression [Recovering/Resolving]
  - Metastases to liver [Recovering/Resolving]
  - Pulmonary embolism [Recovering/Resolving]
  - Abdominal adhesions [Recovering/Resolving]
  - Atrial fibrillation [Recovering/Resolving]
  - Body temperature decreased [Recovering/Resolving]
  - Intestinal obstruction [Recovering/Resolving]
  - Arrhythmia [Recovering/Resolving]
  - Loss of consciousness [Recovering/Resolving]
  - Anaemia [Recovering/Resolving]
  - Back pain [Recovering/Resolving]
  - Blood pressure increased [Recovering/Resolving]
  - Blood pressure systolic increased [Recovering/Resolving]
  - Constipation [Recovering/Resolving]
  - Cough [Recovering/Resolving]
  - Diarrhoea [Recovering/Resolving]
  - Dizziness [Recovering/Resolving]
  - Dyspnoea [Recovering/Resolving]
  - Erythema [Recovering/Resolving]
  - Fatigue [Recovering/Resolving]
  - Feeling abnormal [Recovering/Resolving]
  - Heart rate decreased [Recovering/Resolving]
  - Hepatic pain [Recovering/Resolving]
  - Injection site haematoma [Recovering/Resolving]
  - Injection site haemorrhage [Recovering/Resolving]
  - Injection site oedema [Recovering/Resolving]
  - Nausea [Recovering/Resolving]
  - Piloerection [Recovering/Resolving]
  - Skin disorder [Recovering/Resolving]
  - Urticaria [Recovering/Resolving]
  - Weight decreased [Recovering/Resolving]
  - Injection site pain [Recovering/Resolving]
  - Inappropriate schedule of product administration [Recovering/Resolving]
  - Incorrect dose administered [Recovering/Resolving]
